FAERS Safety Report 5877982-4 (Version None)
Quarter: 2008Q3

REPORT INFORMATION
  Report Type: 
  Country: None (occurrence: None)
  Receive Date: 20080911
  Receipt Date: 20080903
  Transmission Date: 20090109
  Serious: Yes (Hospitalization)
  Sender: FDA-Public Use
  Company Number: JP-ABBOTT-08P-087-0475193-00

PATIENT
  Age: 80 Year
  Sex: Male

DRUGS (2)
  1. LLEUPLIN SR FOR INJECTION KIT 11.25 [Suspect]
     Indication: PROSTATE CANCER
     Dosage: FIFTH DOSE
     Route: 058
     Dates: start: 20070314
  2. LLEUPLIN SR FOR INJECTION KIT 11.25 [Suspect]
     Route: 058
     Dates: start: 20060322, end: 20060322

REACTIONS (2)
  - GASTRIC CANCER [None]
  - MALIGNANT NEOPLASM PROGRESSION [None]
